APPROVED DRUG PRODUCT: METRONIDAZOLE
Active Ingredient: METRONIDAZOLE
Strength: 250MG
Dosage Form/Route: TABLET;ORAL
Application: A070021 | Product #001
Applicant: HALSEY DRUG CO INC
Approved: Apr 2, 1985 | RLD: No | RS: No | Type: DISCN